FAERS Safety Report 9016734 (Version 1)
Quarter: 2013Q1

REPORT INFORMATION
  Report Type: Spontaneous
  Country: US (occurrence: US)
  Receive Date: 20130116
  Receipt Date: 20130116
  Transmission Date: 20140127
  Serious: Yes (Other)
  Sender: FDA-Public Use
  Company Number: US-009507513-1301USA003714

PATIENT
  Age: 6 Year
  Sex: Male

DRUGS (1)
  1. SINGULAIR [Suspect]

REACTIONS (4)
  - Hallucination [Unknown]
  - Feeling abnormal [Unknown]
  - Depressed mood [Unknown]
  - Aggression [Unknown]
